FAERS Safety Report 13921835 (Version 3)
Quarter: 2017Q3

REPORT INFORMATION
  Report Type: Spontaneous
  Country: US (occurrence: US)
  Receive Date: 20170830
  Receipt Date: 20170927
  Transmission Date: 20171127
  Serious: Yes (Hospitalization, Other)
  Sender: FDA-Public Use
  Company Number: US-ACTELION-A-US2017-158645

PATIENT
  Age: 52 Year
  Sex: Male
  Weight: 61.22 kg

DRUGS (3)
  1. LETAIRIS [Concomitant]
     Active Substance: AMBRISENTAN
  2. UPTRAVI [Suspect]
     Active Substance: SELEXIPAG
     Indication: PULMONARY ARTERIAL HYPERTENSION
     Dosage: 1600 MCG, BID
     Route: 048
  3. ADEMPAS [Concomitant]
     Active Substance: RIOCIGUAT

REACTIONS (7)
  - Blood sodium decreased [Unknown]
  - Dyspnoea [Unknown]
  - Pancreatitis [Unknown]
  - Nausea [Unknown]
  - Fatigue [Unknown]
  - Chest pain [Unknown]
  - Myocardial necrosis marker increased [Unknown]
